FAERS Safety Report 21044888 (Version 2)
Quarter: 2022Q4

REPORT INFORMATION
  Report Type: Spontaneous
  Country: FR (occurrence: FR)
  Receive Date: 20220705
  Receipt Date: 20221212
  Transmission Date: 20230112
  Serious: Yes (Life-Threatening, Other)
  Sender: FDA-Public Use
  Company Number: FR-JAZZ-2022-FR-022691

PATIENT

DRUGS (8)
  1. XYREM [Suspect]
     Active Substance: SODIUM OXYBATE
     Indication: Narcolepsy
     Dosage: 4.5 GRAM, BID
     Route: 048
     Dates: start: 202205
  2. POLIGLUSAM [Suspect]
     Active Substance: POLIGLUSAM
     Indication: Weight decreased
     Dosage: 325 MILLIGRAM 6 TIMES/DAY
     Dates: start: 20220512
  3. HERBALS\PAULLINIA CUPANA SEED [Suspect]
     Active Substance: HERBALS\PAULLINIA CUPANA SEED
     Indication: Weight decreased
     Dosage: 475 MILLIGRAM 6 TIMES/DAY
     Dates: start: 20220512
  4. DIETARY SUPPLEMENT [Suspect]
     Active Substance: DIETARY SUPPLEMENT
     Indication: Weight decreased
     Dosage: 420 MILLIGRAM 6/TIMES/DAY
     Dates: start: 20220512
  5. COFFEE [Suspect]
     Active Substance: ARABICA COFFEE BEAN\COFFEE BEAN
     Indication: Weight decreased
     Dosage: 330 MILLIGRAM 4 TIMES/DAY
     Dates: start: 20220512
  6. RASPBERRY KETONE [Suspect]
     Active Substance: RASPBERRY KETONE
     Indication: Weight decreased
     Dosage: 347 MILLIGRAM 4 TIMES/DAY
     Dates: start: 20220512
  7. OPUNTIA FICUS-INDICA [Suspect]
     Active Substance: OPUNTIA FICUS-INDICA
     Indication: Weight decreased
     Dosage: 375 MILLIGRAM 6 TIMES/DAY
     Dates: start: 20220512
  8. ORTHOSIPHON ARISTATUS LEAF [Suspect]
     Active Substance: ORTHOSIPHON ARISTATUS LEAF
     Indication: Weight decreased
     Dosage: 315 MILLIGRAM 5TIMES/DAY
     Dates: start: 20220512

REACTIONS (2)
  - Coma [Not Recovered/Not Resolved]
  - Product use issue [Unknown]

NARRATIVE: CASE EVENT DATE: 20220501
